FAERS Safety Report 7382406-4 (Version None)
Quarter: 2011Q1

REPORT INFORMATION
  Report Type: 
  Country: None (occurrence: None)
  Receive Date: 20110329
  Receipt Date: 20110223
  Transmission Date: 20110831
  Serious: Yes (Other)
  Sender: FDA-Public Use
  Company Number: US-BAYER-2011-005910

PATIENT
  Sex: Female
  Weight: 65.5 kg

DRUGS (24)
  1. MAXZIDE [Concomitant]
     Dosage: 75/50, DAILY
     Route: 048
  2. NITROGLYCERIN [Concomitant]
     Dosage: UNK
     Dates: start: 20000424
  3. CELEBREX [Concomitant]
     Indication: PRODUCT USED FOR UNKNOWN INDICATION
     Dosage: UNK
  4. UNCODEABLE ^UNCLASSIFIABLE^ [Concomitant]
     Indication: PRODUCT USED FOR UNKNOWN INDICATION
  5. FORANE [Concomitant]
     Dosage: UNK
     Dates: start: 20000424, end: 20000424
  6. CALCIUM CHLORIDE [Concomitant]
     Dosage: UNK
     Dates: start: 20000424, end: 20000424
  7. LOPRESSOR [Concomitant]
     Dosage: 12.5 MG, BID
     Route: 048
  8. PRINIVIL [Concomitant]
     Dosage: 10 MG, QD
     Route: 048
  9. FENTANYL [Concomitant]
     Dosage: UNK
     Dates: start: 20000424, end: 20000424
  10. AMICAR [Concomitant]
     Dosage: UNK
     Dates: start: 20000424, end: 20000424
  11. EPHEDRINE [Concomitant]
     Dosage: UNK
     Dates: start: 20000424, end: 20000424
  12. DIOVAN [Concomitant]
     Indication: PRODUCT USED FOR UNKNOWN INDICATION
     Dosage: UNK
     Dates: start: 20000101
  13. VERELAN [Concomitant]
     Dosage: 240 MG, QD
     Route: 048
  14. FRESH FROZEN PLASMA [Concomitant]
     Dosage: 2 U, UNK
     Dates: start: 20000424
  15. PRILOSEC [Concomitant]
     Dosage: 40 MG, QD
     Route: 048
  16. PRILOSEC [Concomitant]
     Dosage: 40 MG, QD
     Route: 048
  17. PAVULON [Concomitant]
     Dosage: UNK
     Dates: start: 20000424, end: 20000424
  18. HEPARIN SODIUM [Concomitant]
     Dosage: UNK
     Dates: start: 20000424
  19. TRASYLOL [Suspect]
     Indication: CORONARY ARTERY BYPASS
     Dosage: UNK
     Route: 042
     Dates: start: 20000424
  20. NAMENDA [Concomitant]
     Indication: PRODUCT USED FOR UNKNOWN INDICATION
     Dosage: UNK
     Dates: start: 20000101
  21. COREG [Concomitant]
     Indication: PRODUCT USED FOR UNKNOWN INDICATION
     Dosage: UNK
     Dates: start: 20000101
  22. LIDOCAINE [Concomitant]
     Indication: PRODUCT USED FOR UNKNOWN INDICATION
  23. NORVASC [Concomitant]
     Indication: PRODUCT USED FOR UNKNOWN INDICATION
     Dosage: UNK
     Dates: start: 20000101
  24. ACETYLSALICYLIC ACID SRT [Concomitant]
     Dosage: 325 MG, QD
     Route: 048

REACTIONS (13)
  - MULTI-ORGAN FAILURE [None]
  - RENAL INJURY [None]
  - INJURY [None]
  - FEAR OF DEATH [None]
  - UNEVALUABLE EVENT [None]
  - PAIN [None]
  - ANXIETY [None]
  - FEAR [None]
  - DEPRESSION [None]
  - EMOTIONAL DISTRESS [None]
  - ANHEDONIA [None]
  - RENAL FAILURE [None]
  - NERVOUSNESS [None]
